FAERS Safety Report 14377528 (Version 3)
Quarter: 2018Q1

REPORT INFORMATION
  Report Type: Spontaneous
  Country: US (occurrence: US)
  Receive Date: 20180111
  Receipt Date: 20180213
  Transmission Date: 20180509
  Serious: Yes (Hospitalization, Other)
  Sender: FDA-Public Use
  Company Number: US-TAKEDA-2018TUS000461

PATIENT
  Age: 41 Year
  Sex: Female
  Weight: 86.17 kg

DRUGS (1)
  1. ENTYVIO [Suspect]
     Active Substance: VEDOLIZUMAB
     Indication: COLITIS ULCERATIVE
     Dosage: 300 MG, UNK
     Route: 042
     Dates: start: 20171129, end: 20171213

REACTIONS (1)
  - Appendix cancer [Recovered/Resolved]

NARRATIVE: CASE EVENT DATE: 20171220
